FAERS Safety Report 9496427 (Version 2)
Quarter: 2013Q3

REPORT INFORMATION
  Report Type: Spontaneous
  Country: US (occurrence: None)
  Receive Date: 20130829
  Receipt Date: 20130909
  Transmission Date: 20140515
  Serious: Yes (Hospitalization, Other)
  Sender: FDA-Public Use
  Company Number: ACO_37165_2013

PATIENT
  Sex: Female

DRUGS (2)
  1. AMPYRA [Suspect]
     Indication: MULTIPLE SCLEROSIS
     Dates: start: 20100827, end: 20121016
  2. AMPYRA [Suspect]
     Indication: GAIT DISTURBANCE
     Dates: start: 20100827, end: 20121016

REACTIONS (2)
  - Hospitalisation [None]
  - Chronic obstructive pulmonary disease [None]
